FAERS Safety Report 8510140-3 (Version None)
Quarter: 2012Q3

REPORT INFORMATION
  Report Type: 
  Country: None (occurrence: None)
  Receive Date: 20120713
  Receipt Date: 20120701
  Transmission Date: 20120928
  Serious: Yes (Other)
  Sender: FDA-Public Use
  Company Number: CA-ROCHE-731609

PATIENT

DRUGS (2)
  1. RANIBIZUMAB [Suspect]
     Indication: RETINAL DISORDER
  2. AVASTIN [Suspect]
     Indication: RETINAL DISORDER
     Route: 050

REACTIONS (2)
  - EYE INFLAMMATION [None]
  - BLINDNESS [None]
